FAERS Safety Report 4318575-X (Version None)
Quarter: 2004Q1

REPORT INFORMATION
  Report Type: 
  Country: None (occurrence: None)
  Receive Date: 20040318
  Receipt Date: 20040309
  Transmission Date: 20041129
  Serious: Yes (Other)
  Sender: FDA-Public Use
  Company Number: PHBS2004JP03398

PATIENT
  Sex: Male

DRUGS (1)
  1. VOLTAREN [Suspect]
     Indication: POSTOPERATIVE FEVER
     Dosage: 25 MG/DAY
     Route: 054
     Dates: end: 20040101

REACTIONS (4)
  - ADRENOCORTICAL INSUFFICIENCY ACUTE [None]
  - ANURIA [None]
  - BLOOD PRESSURE DECREASED [None]
  - SHOCK [None]
